FAERS Safety Report 16783247 (Version 1)
Quarter: 2019Q3

REPORT INFORMATION
  Report Type: Spontaneous
  Country: US (occurrence: US)
  Receive Date: 20190907
  Receipt Date: 20190907
  Transmission Date: 20191005
  Serious: No
  Sender: FDA-Public Use
  Company Number: US-009507513-1909USA002155

PATIENT
  Sex: Female

DRUGS (9)
  1. STERILE DILUENT (WATER) [Concomitant]
     Active Substance: WATER
     Dosage: 1 ML
  2. PREGNYL [Suspect]
     Active Substance: CHORIOGONADOTROPIN ALFA
     Indication: INFERTILITY FEMALE
     Dosage: STRENGTH: 10,000 UNIT MDV 60, MIX WITH 1 ML OF DILUENT, WHEN DIRECTED
     Route: 058
     Dates: start: 20190822
  3. ESTRADIOL. [Concomitant]
     Active Substance: ESTRADIOL
     Dosage: UNK
  4. LEUPROLIDE [Concomitant]
     Active Substance: LEUPROLIDE
     Dosage: MICRO DOSE
  5. WELLBUTRIN [Concomitant]
     Active Substance: BUPROPION HYDROCHLORIDE
     Dosage: UNK
  6. GANIRELIX ACETATE. [Concomitant]
     Active Substance: GANIRELIX ACETATE
     Indication: INFERTILITY FEMALE
     Dosage: 1 SYRINGE, WHEN DIRECTED
     Dates: start: 20190822
  7. ETHINYL ESTRADIOL (+) NORETHINDRONE ACETATE [Concomitant]
     Dosage: UNK
  8. FOLLISTIM AQ [Suspect]
     Active Substance: FOLLITROPIN
     Indication: INFERTILITY FEMALE
     Dosage: STRENGTH: 600 IU/0.72 ML, 225 UNITS, WHEN DIRECTED
     Route: 058
     Dates: start: 20190822
  9. PROGESTERONE. [Concomitant]
     Active Substance: PROGESTERONE
     Dosage: UNK

REACTIONS (1)
  - Weight increased [Unknown]
